FAERS Safety Report 17197024 (Version 1)
Quarter: 2019Q4

REPORT INFORMATION
  Report Type: Spontaneous
  Country: US (occurrence: US)
  Receive Date: 20191224
  Receipt Date: 20191224
  Transmission Date: 20200122
  Serious: No
  Sender: FDA-Public Use
  Company Number: US-SA-2019SA355385

PATIENT
  Age: 62 Year
  Sex: Female

DRUGS (9)
  1. HYDROCORT [HYDROCORTISONE ACETATE] [Concomitant]
  2. MONTELUKAST [Concomitant]
     Active Substance: MONTELUKAST SODIUM
  3. AMLODIPINE [Concomitant]
     Active Substance: AMLODIPINE BESYLATE
  4. DUPIXENT [Suspect]
     Active Substance: DUPILUMAB
     Indication: DERMATITIS
     Dosage: 600 MG, 1X
     Route: 058
     Dates: start: 20191211, end: 20191211
  5. QVAR [Concomitant]
     Active Substance: BECLOMETHASONE DIPROPIONATE
  6. ALLOPURINOL. [Concomitant]
     Active Substance: ALLOPURINOL
  7. TRAZODONE [Concomitant]
     Active Substance: TRAZODONE HYDROCHLORIDE
  8. CLOBETASOL [Concomitant]
     Active Substance: CLOBETASOL
  9. EUCRISA [Concomitant]
     Active Substance: CRISABOROLE

REACTIONS (2)
  - Rash [Not Recovered/Not Resolved]
  - Dermatitis [Not Recovered/Not Resolved]
